FAERS Safety Report 21155866 (Version 1)
Quarter: 2022Q3

REPORT INFORMATION
  Report Type: Spontaneous
  Country: US (occurrence: None)
  Receive Date: 20220730
  Receipt Date: 20220730
  Transmission Date: 20221026
  Serious: Yes (Hospitalization)
  Sender: FDA-Public Use
  Company Number: None

PATIENT
  Age: 76 Year
  Sex: Male
  Weight: 126.1 kg

DRUGS (1)
  1. PAXLOVID [Suspect]
     Active Substance: NIRMATRELVIR\RITONAVIR
     Dosage: 2 150 1 100 BID PO?
     Route: 048
     Dates: start: 20220726

REACTIONS (5)
  - Cough [None]
  - Pyrexia [None]
  - COVID-19 [None]
  - Productive cough [None]
  - Lung opacity [None]

NARRATIVE: CASE EVENT DATE: 20220727
